FAERS Safety Report 6108448-4 (Version None)
Quarter: 2009Q1

REPORT INFORMATION
  Report Type: 
  Country: None (occurrence: None)
  Receive Date: 20090309
  Receipt Date: 20090303
  Transmission Date: 20090719
  Serious: Yes (Death, Other)
  Sender: FDA-Public Use
  Company Number: JP-ROXANE LABORATORIES, INC.-2009-RO-00200RO

PATIENT
  Age: 63 Year
  Sex: Female

DRUGS (3)
  1. DEXAMETHASONE [Suspect]
     Indication: IMMUNOSUPPRESSANT DRUG THERAPY
     Dosage: 20MG
  2. METHYLPREDNISOLONE 4MG TAB [Suspect]
     Indication: IMMUNOSUPPRESSANT DRUG THERAPY
     Dosage: 1000MG
     Route: 042
  3. CHEMOTHERAPY [Concomitant]
     Indication: ADULT T-CELL LYMPHOMA/LEUKAEMIA

REACTIONS (2)
  - ADULT T-CELL LYMPHOMA/LEUKAEMIA [None]
  - SEPSIS [None]
